FAERS Safety Report 4917882-7 (Version None)
Quarter: 2006Q1

REPORT INFORMATION
  Report Type: 
  Country: None (occurrence: None)
  Receive Date: 20060215
  Receipt Date: 20060207
  Transmission Date: 20060701
  Serious: Yes (Life-Threatening, Other)
  Sender: FDA-Public Use
  Company Number: 2006011122

PATIENT
  Age: 71 Year
  Sex: Female

DRUGS (4)
  1. NEURONTIN [Suspect]
     Indication: PAIN
     Dosage: 2 IN 1 D, ORAL
     Route: 048
     Dates: start: 20041215, end: 20050204
  2. DILTIAZEM [Concomitant]
  3. ISOSORBIDE MONONITRATE [Concomitant]
  4. CARBASALATE CALCIUM (CARBASALATE CALCIUM) [Concomitant]

REACTIONS (4)
  - HEAD DISCOMFORT [None]
  - OEDEMA PERIPHERAL [None]
  - OPTIC NEURITIS [None]
  - PULMONARY OEDEMA [None]
